FAERS Safety Report 16474338 (Version 2)
Quarter: 2019Q3

REPORT INFORMATION
  Report Type: Spontaneous
  Country: US (occurrence: US)
  Receive Date: 20190625
  Receipt Date: 20190708
  Transmission Date: 20191004
  Serious: No
  Sender: FDA-Public Use
  Company Number: US-PFIZER INC-2019262406

PATIENT
  Sex: Male

DRUGS (1)
  1. CHANTIX [Suspect]
     Active Substance: VARENICLINE TARTRATE
     Dosage: UNK
     Dates: start: 201905

REACTIONS (5)
  - Oropharyngeal pain [Unknown]
  - Mouth haemorrhage [Unknown]
  - Anxiety [Unknown]
  - Dry throat [Unknown]
  - Insomnia [Unknown]

NARRATIVE: CASE EVENT DATE: 201906
